FAERS Safety Report 7271782-9 (Version None)
Quarter: 2011Q1

REPORT INFORMATION
  Report Type: 
  Country: None (occurrence: None)
  Receive Date: 20110131
  Receipt Date: 20110131
  Transmission Date: 20110831
  Serious: Yes (Death, Hospitalization)
  Sender: FDA-Public Use
  Company Number: None

PATIENT
  Sex: Male
  Weight: 63.8 kg

DRUGS (2)
  1. CARBOPLATIN [Suspect]
     Dosage: 702 MG
     Dates: end: 20101223
  2. TAXOL [Suspect]
     Dosage: 366 MG
     Dates: end: 20101223

REACTIONS (4)
  - DYSPNOEA [None]
  - CARDIO-RESPIRATORY ARREST [None]
  - ORAL CANDIDIASIS [None]
  - RIB FRACTURE [None]
